FAERS Safety Report 8487932-2 (Version None)
Quarter: 2012Q2

REPORT INFORMATION
  Report Type: 
  Country: None (occurrence: None)
  Receive Date: 20120402
  Receipt Date: 20100806
  Transmission Date: 20120825
  Serious: Yes (Other)
  Sender: FDA-Public Use
  Company Number: PHHY2010US52202

PATIENT
  Sex: Female

DRUGS (2)
  1. MEDIFAST (MEDIFAST) [Concomitant]
  2. EXFORGE [Suspect]
     Dosage: 10/320 MG ONCE DAILY

REACTIONS (2)
  - DIZZINESS [None]
  - HYPOTENSION [None]
